FAERS Safety Report 8250452-4 (Version None)
Quarter: 2012Q1

REPORT INFORMATION
  Report Type: 
  Country: None (occurrence: None)
  Receive Date: 20120329
  Receipt Date: 20120312
  Transmission Date: 20120608
  Serious: Yes (Hospitalization, Other)
  Sender: FDA-Public Use
  Company Number: 2012MA003339

PATIENT
  Age: 25 Year
  Sex: Female

DRUGS (2)
  1. FEVERALL [Suspect]
     Indication: PRODUCT USED FOR UNKNOWN INDICATION
     Dosage: 24 GM; PO
     Route: 048
  2. CLOBAZAM [Concomitant]

REACTIONS (9)
  - CAESAREAN SECTION [None]
  - TOXICITY TO VARIOUS AGENTS [None]
  - INCORRECT DOSE ADMINISTERED [None]
  - INTENTIONAL SELF-INJURY [None]
  - CYTOLYTIC HEPATITIS [None]
  - HEPATOTOXICITY [None]
  - MATERNAL EXPOSURE DURING PREGNANCY [None]
  - CHORIOAMNIONITIS [None]
  - PREMATURE DELIVERY [None]
